FAERS Safety Report 7642215-5 (Version None)
Quarter: 2011Q3

REPORT INFORMATION
  Report Type: 
  Country: None (occurrence: None)
  Receive Date: 20110728
  Receipt Date: 20110714
  Transmission Date: 20111222
  Serious: Yes (Other)
  Sender: FDA-Public Use
  Company Number: PHHY2011US63151

PATIENT
  Age: 64 Year
  Sex: Female

DRUGS (2)
  1. TEGRETOL [Suspect]
     Indication: HEADACHE
     Dosage: 200 MG, (1 TABLET IN AM AND 1 AND HALF TABLET IN PM EVERY DAY)
  2. VITAMINS NOS [Concomitant]
     Dosage: UNK UKN, UNK

REACTIONS (1)
  - CENTRAL NERVOUS SYSTEM LESION [None]
